FAERS Safety Report 13828689 (Version 2)
Quarter: 2017Q3

REPORT INFORMATION
  Report Type: Spontaneous
  Country: CN (occurrence: CN)
  Receive Date: 20170803
  Receipt Date: 20170807
  Transmission Date: 20171127
  Serious: Yes (Other)
  Sender: FDA-Public Use
  Company Number: CN-JNJFOC-20170709064

PATIENT

DRUGS (1)
  1. PARACETAMOL [Suspect]
     Active Substance: ACETAMINOPHEN
     Indication: PATENT DUCTUS ARTERIOSUS REPAIR
     Dosage: Q6H FOR 3 CONSECUTIVE DAYS
     Route: 048

REACTIONS (8)
  - Bronchopulmonary dysplasia [Unknown]
  - Necrotising colitis [Unknown]
  - Occult blood positive [Unknown]
  - Off label use [Unknown]
  - Oliguria [Unknown]
  - Intraventricular haemorrhage [Unknown]
  - Product use in unapproved indication [Unknown]
  - Therapeutic response unexpected [Unknown]
